FAERS Safety Report 10054685 (Version 2)
Quarter: 2014Q2

REPORT INFORMATION
  Report Type: Spontaneous
  Country: US (occurrence: US)
  Receive Date: 20140402
  Receipt Date: 20140501
  Transmission Date: 20141212
  Serious: No
  Sender: FDA-Public Use
  Company Number: US-AMGEN-USASP2014021643

PATIENT
  Age: 1 Year
  Sex: Male

DRUGS (13)
  1. ENBREL [Suspect]
     Indication: PRODUCT USED FOR UNKNOWN INDICATION
     Dosage: 50 MG, QWK
     Route: 063
     Dates: start: 20130819
  2. DTP [Concomitant]
     Dosage: UNK
     Dates: start: 20121015, end: 20121015
  3. POLIO [Concomitant]
     Dosage: UNK
     Dates: start: 20121015, end: 20121015
  4. HAEMOPHILUS INFLUENZA TYPE B VACCINE [Concomitant]
     Dosage: UNK
     Dates: start: 20121015, end: 20121015
  5. ROTAVIRUS VACCINE [Concomitant]
     Dosage: UNK
     Dates: start: 20121015, end: 20121015
  6. MEASLES, MUMPS AND RUBELLA VACCINE [Concomitant]
     Dosage: UNK
     Dates: start: 20130815
  7. VARICELLA VACCINE [Concomitant]
     Dosage: UNK
     Dates: start: 20130815, end: 20130815
  8. INFLUENZA VACCINE [Concomitant]
     Dosage: UNK
     Dates: start: 20130212, end: 20130212
  9. PNEUMOCOCCAL CONJUGATE VACCINE [Concomitant]
     Dosage: UNK
     Dates: start: 20121015, end: 20121015
  10. HEPATITIS B [Concomitant]
     Dosage: UNK
     Dates: start: 20120813
  11. HEPATITIS A [Concomitant]
     Dosage: UNK
     Dates: start: 20140212
  12. DHA [Concomitant]
     Dosage: 5 ML, QD
     Route: 048
  13. TRIVISOL                           /00262101/ [Concomitant]
     Dosage: 1 ML, QD
     Route: 048

REACTIONS (1)
  - Increased tendency to bruise [Not Recovered/Not Resolved]
